FAERS Safety Report 5006374-5 (Version None)
Quarter: 2006Q2

REPORT INFORMATION
  Report Type: 
  Country: None (occurrence: None)
  Receive Date: 20060519
  Receipt Date: 20060512
  Transmission Date: 20061013
  Serious: Yes (Death)
  Sender: FDA-Public Use
  Company Number: CA-JNJFOC-20060503122

PATIENT
  Weight: 52 kg

DRUGS (14)
  1. TRAMACET [Suspect]
     Indication: PAIN
     Dates: start: 20060430, end: 20060502
  2. EFFEXOR XR [Interacting]
     Indication: DEPRESSION
  3. ASPIRIN [Concomitant]
  4. CALCITRIOL [Concomitant]
     Indication: OSTEOPOROSIS
  5. COLACE [Concomitant]
     Indication: CONSTIPATION
  6. DOMPERIDONE [Concomitant]
     Indication: GASTROINTESTINAL MOTILITY DISORDER
  7. ENTACAPONE [Concomitant]
     Indication: PARKINSON'S DISEASE
  8. FUROSEMIDE [Concomitant]
  9. SINEMET [Concomitant]
  10. SINEMET [Concomitant]
     Indication: PARKINSON'S DISEASE
  11. ADALAT [Concomitant]
  12. SEROQUEL [Concomitant]
  13. SENOKOT [Concomitant]
     Indication: CONSTIPATION
  14. TYLENOL (CAPLET) [Concomitant]

REACTIONS (3)
  - DRUG INTERACTION [None]
  - RESPIRATORY ARREST [None]
  - SEROTONIN SYNDROME [None]
